FAERS Safety Report 7361206-5 (Version None)
Quarter: 2011Q1

REPORT INFORMATION
  Report Type: 
  Country: None (occurrence: None)
  Receive Date: 20110318
  Receipt Date: 20110308
  Transmission Date: 20110831
  Serious: Yes (Life-Threatening, Other)
  Sender: FDA-Public Use
  Company Number: JP-SANOFI-AVENTIS-2011SA003491

PATIENT
  Age: 34 Year
  Sex: Male
  Weight: 55 kg

DRUGS (5)
  1. AMOXAN [Suspect]
     Route: 048
     Dates: end: 20110111
  2. MYSLEE [Suspect]
     Indication: INSOMNIA
     Route: 048
     Dates: end: 20110111
  3. DOGMATYL [Suspect]
     Route: 048
     Dates: end: 20110111
  4. LENDORMIN [Suspect]
     Route: 048
     Dates: end: 20110111
  5. VEGETAMIN A [Suspect]
     Route: 048
     Dates: end: 20110111

REACTIONS (4)
  - NEUROLEPTIC MALIGNANT SYNDROME [None]
  - RHABDOMYOLYSIS [None]
  - RENAL FAILURE ACUTE [None]
  - INTENTIONAL OVERDOSE [None]
